FAERS Safety Report 21715999 (Version 2)
Quarter: 2023Q1

REPORT INFORMATION
  Report Type: Spontaneous
  Country: JP (occurrence: JP)
  Receive Date: 20221212
  Receipt Date: 20230103
  Transmission Date: 20230418
  Serious: No
  Sender: FDA-Public Use
  Company Number: JP-ferring-EVA202201435FERRINGPH

PATIENT

DRUGS (1)
  1. DESMOPRESSIN ACETATE [Suspect]
     Active Substance: DESMOPRESSIN ACETATE
     Indication: Diabetes insipidus
     Dosage: 30 UG, 1 TIME DAILY (60 UG AT A DOSE OF HALF A TABLET, AT A DOSE OF 30 UG ONCE A DAY BEFORE BEDTIME)
     Route: 065

REACTIONS (4)
  - Hyponatraemia [Unknown]
  - Wrong technique in product usage process [Not Recovered/Not Resolved]
  - Contraindicated product administered [Not Recovered/Not Resolved]
  - Labelled drug-disease interaction medication error [Not Recovered/Not Resolved]

NARRATIVE: CASE EVENT DATE: 20221124
